FAERS Safety Report 24795325 (Version 1)
Quarter: 2024Q4

REPORT INFORMATION
  Report Type: Spontaneous
  Country: CN (occurrence: CN)
  Receive Date: 20241231
  Receipt Date: 20241231
  Transmission Date: 20250115
  Serious: Yes (Hospitalization, Other)
  Sender: GE HEALTHCARE
  Company Number: CN-GE HEALTHCARE-2024CSU015027

PATIENT
  Age: 53 Year
  Sex: Male
  Weight: 92 kg

DRUGS (1)
  1. VISIPAQUE [Suspect]
     Active Substance: IODIXANOL
     Indication: Computerised tomogram heart
     Dosage: 100 ML, TOTAL
     Route: 042
     Dates: start: 20241217, end: 20241217

REACTIONS (4)
  - Erythema multiforme [Recovered/Resolved]
  - Rash erythematous [Recovered/Resolved]
  - Pruritus [Recovered/Resolved]
  - Contrast media allergy [Recovered/Resolved]

NARRATIVE: CASE EVENT DATE: 20241217
